FAERS Safety Report 17456390 (Version 1)
Quarter: 2020Q1

REPORT INFORMATION
  Report Type: Spontaneous
  Country: US (occurrence: US)
  Receive Date: 20200225
  Receipt Date: 20200225
  Transmission Date: 20200409
  Serious: Yes (Death, Other)
  Sender: FDA-Public Use
  Company Number: US-HIKMA PHARMACEUTICALS USA INC.-US-H14001-20-00969

PATIENT
  Age: 15 Month
  Sex: Female

DRUGS (1)
  1. BLEOMYCIN [Suspect]
     Active Substance: BLEOMYCIN SULFATE
     Indication: VASCULAR MALFORMATION
     Route: 026

REACTIONS (4)
  - Pneumothorax [Fatal]
  - Diffuse alveolar damage [Fatal]
  - Pulmonary toxicity [Fatal]
  - Respiratory distress [Fatal]
